FAERS Safety Report 15964566 (Version 1)
Quarter: 2019Q1

REPORT INFORMATION
  Report Type: Spontaneous
  Country: GB (occurrence: GB)
  Receive Date: 20190215
  Receipt Date: 20190215
  Transmission Date: 20190417
  Serious: Yes (Other)
  Sender: FDA-Public Use
  Company Number: GB-TEVA-2019-GB-1011187

PATIENT
  Age: 77 Year
  Sex: Male
  Weight: 76.2 kg

DRUGS (7)
  1. LOSARTAN POTASSIUM. [Concomitant]
     Active Substance: LOSARTAN POTASSIUM
  2. ACETYLSALICYLIC ACID [Concomitant]
     Active Substance: ASPIRIN
  3. ROSUVASTATIN. [Concomitant]
     Active Substance: ROSUVASTATIN
  4. TAMSULOSIN [Concomitant]
     Active Substance: TAMSULOSIN
  5. AMLODIPINE [Concomitant]
     Active Substance: AMLODIPINE BESYLATE
  6. OMEPRAZOLE. [Concomitant]
     Active Substance: OMEPRAZOLE
  7. FINASTERIDE. [Suspect]
     Active Substance: FINASTERIDE
     Indication: DYSURIA
     Route: 048
     Dates: start: 20181214

REACTIONS (3)
  - Pollakiuria [Recovered/Resolved]
  - Anorectal discomfort [Unknown]
  - Dysuria [Recovered/Resolved]

NARRATIVE: CASE EVENT DATE: 20181223
